FAERS Safety Report 6295143-4 (Version None)
Quarter: 2009Q3

REPORT INFORMATION
  Report Type: 
  Country: None (occurrence: None)
  Receive Date: 20090731
  Receipt Date: 20090731
  Transmission Date: 20100115
  Serious: Yes (Hospitalization)
  Sender: FDA-Public Use
  Company Number: None

PATIENT
  Age: 83 Year
  Sex: Male
  Weight: 109.8 kg

DRUGS (3)
  1. DILTIAZEM [Suspect]
     Indication: ATRIAL FIBRILLATION
     Dosage: 120 MG EVERY DAY PO
     Route: 048
     Dates: start: 20050209, end: 20090605
  2. METOPROLOL [Suspect]
     Indication: ATRIAL FIBRILLATION
     Dosage: 25 MG BID PO
     Route: 048
     Dates: start: 20050209
  3. METOPROLOL [Suspect]
     Indication: PAIN
     Dosage: 25 MG BID PO
     Route: 048
     Dates: start: 20050209

REACTIONS (1)
  - BRADYCARDIA [None]
